FAERS Safety Report 8047041-3 (Version None)
Quarter: 2012Q1

REPORT INFORMATION
  Report Type: 
  Country: None (occurrence: None)
  Receive Date: 20120116
  Receipt Date: 20120110
  Transmission Date: 20120608
  Serious: Yes (Other)
  Sender: FDA-Public Use
  Company Number: US-BAYER-2011-114350

PATIENT
  Sex: Female

DRUGS (5)
  1. PREDNISONE [Concomitant]
  2. MIRENA [Suspect]
  3. ANTIBIOTICS [Concomitant]
  4. MIRENA [Suspect]
     Indication: CONTRACEPTION
     Dosage: 20 MCG/24HR, CONT
     Route: 015
     Dates: start: 20110506, end: 20111107
  5. ADVAIR DISKUS 100/50 [Concomitant]

REACTIONS (7)
  - ABDOMINAL PAIN [None]
  - DEVICE EXPULSION [None]
  - PHOTOSENSITIVITY REACTION [None]
  - PRESYNCOPE [None]
  - SWELLING [None]
  - VAGINAL HAEMORRHAGE [None]
  - SKIN DISCOLOURATION [None]
